FAERS Safety Report 6423583-9 (Version None)
Quarter: 2009Q4

REPORT INFORMATION
  Report Type: 
  Country: None (occurrence: None)
  Receive Date: 20091030
  Receipt Date: 20091030
  Transmission Date: 20100525
  Serious: No
  Sender: FDA-Public Use
  Company Number: None

PATIENT
  Sex: Female
  Weight: 63.64 kg

DRUGS (2)
  1. CARBOPLATIN [Suspect]
     Dosage: 633 MG
  2. TAXOL [Suspect]
     Dosage: 305 MG

REACTIONS (1)
  - NEUTROPHIL COUNT ABNORMAL [None]
